FAERS Safety Report 4441967-5 (Version None)
Quarter: 2004Q3

REPORT INFORMATION
  Report Type: 
  Country: None (occurrence: None)
  Receive Date: 20040907
  Receipt Date: 20040708
  Transmission Date: 20050211
  Serious: Yes (Hospitalization, Disabling)
  Sender: FDA-Public Use
  Company Number: JP-GLAXOSMITHKLINE-B0339022A

PATIENT
  Age: 63 Year
  Sex: Male
  Weight: 47 kg

DRUGS (15)
  1. VALTREX [Suspect]
     Indication: HERPES ZOSTER
     Dosage: 1000MG PER DAY
     Route: 048
     Dates: start: 20040705, end: 20040708
  2. MEXITIL [Concomitant]
     Indication: ARRHYTHMIA
     Dosage: 100MG PER DAY
     Route: 048
  3. CALTAN [Concomitant]
     Dosage: 4500MG PER DAY
     Route: 048
  4. LASIX [Concomitant]
     Dosage: 40MG PER DAY
     Route: 048
  5. CARDENALIN [Concomitant]
     Indication: HYPERTENSION
     Dosage: 2MG PER DAY
     Route: 048
  6. NITROGLYCERIN [Concomitant]
     Indication: CHEST PAIN
     Route: 048
  7. ACINON [Concomitant]
     Indication: GASTRIC ULCER
     Dosage: 300MG PER DAY
     Route: 048
  8. PROMAC [Concomitant]
     Indication: GASTRIC ULCER
     Dosage: 1G PER DAY
     Route: 048
  9. DILTIAZEM HYDROCHLORIDE [Concomitant]
     Indication: HYPERTENSION
     Dosage: 200MG PER DAY
     Route: 048
  10. FRANDOL [Concomitant]
     Indication: ANGINA PECTORIS
     Dosage: 40MG PER DAY
     Route: 048
  11. CEREKINON [Concomitant]
     Indication: GASTRITIS
     Dosage: 300MG PER DAY
     Route: 048
  12. JUVELA NICOTINATE [Concomitant]
     Indication: HYPERTENSION
     Dosage: 300MG PER DAY
     Route: 048
  13. EPADEL [Concomitant]
     Indication: PERIPHERAL CIRCULATORY FAILURE
     Dosage: 1800MG PER DAY
     Route: 048
  14. TAGAMET [Concomitant]
     Indication: GASTRIC ULCER
     Dosage: 600MG PER DAY
     Route: 048
  15. WARFARIN SODIUM [Concomitant]
     Indication: CEREBRAL INFARCTION
     Dosage: 2MG PER DAY
     Route: 048

REACTIONS (7)
  - DELIRIUM [None]
  - DIFFICULTY IN WALKING [None]
  - DIPLOPIA [None]
  - DYSAESTHESIA [None]
  - DYSARTHRIA [None]
  - ENCEPHALOPATHY [None]
  - SPEECH DISORDER [None]
